FAERS Safety Report 8694026 (Version 4)
Quarter: 2013Q1

REPORT INFORMATION
  Report Type: Spontaneous
  Country: MX (occurrence: MX)
  Receive Date: 20120731
  Receipt Date: 20130311
  Transmission Date: 20140127
  Serious: Yes (Other)
  Sender: FDA-Public Use
  Company Number: PHHY2010MX68538

PATIENT
  Age: 69 Year
  Sex: Female

DRUGS (8)
  1. ACLASTA [Suspect]
     Indication: OSTEOPOROSIS
     Dosage: 1 INJECTION OF 5 MG/100 ML PER YEAR
     Route: 042
     Dates: start: 200910
  2. ACLASTA [Suspect]
     Dosage: 1 INJECTION OF 5 MG/100 ML PER YEAR
     Route: 042
     Dates: start: 20101005
  3. GLUCOSAMINE [Concomitant]
     Indication: ARTHROPATHY
     Dosage: 1 PER DAY
     Dates: start: 200910
  4. GLUCOSAMINE [Concomitant]
     Indication: OSTEOPOROSIS
  5. CALCIUM [Concomitant]
     Indication: BONE DISORDER
     Dosage: 1 PER DAY
  6. OMEGA 3 [Concomitant]
     Indication: SUPPLEMENTATION THERAPY
     Dosage: 1 PER DAY
     Dates: start: 2011
  7. BETOPIC [Concomitant]
     Indication: GLAUCOMA
     Dosage: 1 DROP DAILY
  8. TEARS NATURALE [Concomitant]
     Indication: GLAUCOMA
     Dosage: 4 DF (4 DROPS) DAILY
     Dates: start: 2002

REACTIONS (10)
  - Fall [Recovered/Resolved]
  - Joint injury [Recovered/Resolved]
  - Blister [Recovered/Resolved]
  - Breast pain [Recovered/Resolved]
  - Skin discolouration [Recovered/Resolved]
  - Limb discomfort [Recovered/Resolved]
  - Influenza [Recovered/Resolved]
  - Pain [Recovered/Resolved]
  - Cough [Recovered/Resolved]
  - Drug ineffective [Not Recovered/Not Resolved]
